FAERS Safety Report 14384815 (Version 1)
Quarter: 2018Q1

REPORT INFORMATION
  Report Type: Spontaneous
  Country: US (occurrence: US)
  Receive Date: 20180115
  Receipt Date: 20180115
  Transmission Date: 20180509
  Serious: Yes (Hospitalization)
  Sender: FDA-Public Use
  Company Number: US-MYLANLABS-2018M1002278

PATIENT
  Sex: Female
  Weight: 35 kg

DRUGS (1)
  1. EMSAM [Suspect]
     Active Substance: SELEGILINE
     Indication: DEPRESSION
     Dosage: 12 MG, UNK
     Route: 062
     Dates: start: 20161001

REACTIONS (1)
  - Weight decreased [Not Recovered/Not Resolved]
